FAERS Safety Report 4945100-2 (Version None)
Quarter: 2006Q1

REPORT INFORMATION
  Report Type: 
  Country: None (occurrence: None)
  Receive Date: 20060316
  Receipt Date: 20060309
  Transmission Date: 20060701
  Serious: Yes (Hospitalization)
  Sender: FDA-Public Use
  Company Number: 2006UW04022

PATIENT
  Sex: Female

DRUGS (3)
  1. NEXIUM [Suspect]
     Indication: GASTRIC BYPASS
     Route: 048
     Dates: start: 20050901
  2. CIPRO [Interacting]
  3. AUGMENTIN '125' [Concomitant]

REACTIONS (5)
  - CYSTITIS [None]
  - DRUG INTERACTION [None]
  - HAEMORRHAGE [None]
  - MALABSORPTION [None]
  - SEPSIS [None]
